FAERS Safety Report 8575408-3 (Version None)
Quarter: 2012Q3

REPORT INFORMATION
  Report Type: 
  Country: None (occurrence: None)
  Receive Date: 20120807
  Receipt Date: 20120801
  Transmission Date: 20120928
  Serious: Yes (Other)
  Sender: FDA-Public Use
  Company Number: US-PFIZER INC-2012175973

PATIENT
  Age: 76 Year
  Sex: Male
  Weight: 113.38 kg

DRUGS (5)
  1. ALLOPURINOL [Concomitant]
     Indication: BLOOD URIC ACID INCREASED
     Dosage: UNK
  2. LYRICA [Suspect]
     Dosage: 300 MG, DAILY
     Dates: start: 20111201
  3. LYRICA [Suspect]
     Dosage: 200 MG, 2X/DAY
  4. LYRICA [Suspect]
     Indication: NEUROPATHY PERIPHERAL
     Dosage: 100 MG, DAILY
     Dates: start: 20100101
  5. LYRICA [Suspect]
     Dosage: 200 MG, DAILY

REACTIONS (1)
  - WEIGHT INCREASED [None]
